FAERS Safety Report 14720831 (Version 2)
Quarter: 2018Q2

REPORT INFORMATION
  Report Type: Report from Study
  Country: BE (occurrence: BE)
  Receive Date: 20180405
  Receipt Date: 20180621
  Transmission Date: 20180711
  Serious: Yes (Hospitalization, Other)
  Sender: FDA-Public Use
  Company Number: BE-MYLANLABS-2018M1021423

PATIENT
  Age: 75 Year
  Sex: Female
  Weight: 63 kg

DRUGS (17)
  1. AVASTIN [Suspect]
     Active Substance: BEVACIZUMAB
     Indication: OVARIAN CANCER
     Dosage: 963 MG, 3XW
     Route: 042
     Dates: start: 20160225
  2. AVASTIN [Suspect]
     Active Substance: BEVACIZUMAB
     Dosage: 915 MG, 3XW
     Route: 042
     Dates: start: 20160902
  3. EFEXOR [Concomitant]
     Active Substance: VENLAFAXINE HYDROCHLORIDE
     Indication: PRODUCT USED FOR UNKNOWN INDICATION
     Dosage: UNK
  4. SIMVASTATIN. [Concomitant]
     Active Substance: SIMVASTATIN
     Indication: PRODUCT USED FOR UNKNOWN INDICATION
     Dosage: UNK
  5. AMOCLANE [Concomitant]
     Indication: INFECTION
     Dosage: UNK
     Route: 065
  6. ASAFLOW [Concomitant]
     Active Substance: ASPIRIN
     Indication: PRODUCT USED FOR UNKNOWN INDICATION
     Dosage: UNK
     Route: 065
  7. AVASTIN [Suspect]
     Active Substance: BEVACIZUMAB
     Dosage: 990 MG, 3XW
     Route: 042
     Dates: start: 20160426
  8. SIPRALEXA [Concomitant]
     Active Substance: ESCITALOPRAM OXALATE
     Indication: PRODUCT USED FOR UNKNOWN INDICATION
     Dosage: UNK
  9. FRAXODI [Concomitant]
     Active Substance: NADROPARIN CALCIUM
     Indication: PRODUCT USED FOR UNKNOWN INDICATION
     Dosage: UNK
     Route: 065
  10. AVASTIN [Suspect]
     Active Substance: BEVACIZUMAB
     Dosage: 990 MG, 3XW
     Route: 042
     Dates: start: 20160308
  11. AVASTIN [Suspect]
     Active Substance: BEVACIZUMAB
     Dosage: 975 MG, 3XW
     Route: 042
     Dates: start: 20160317
  12. PARACETAMOL [Concomitant]
     Active Substance: ACETAMINOPHEN
     Indication: PRODUCT USED FOR UNKNOWN INDICATION
     Dosage: UNK
  13. STEOVIT D3 [Concomitant]
     Active Substance: CALCIUM CARBONATE\CHOLECALCIFEROL
     Indication: PRODUCT USED FOR UNKNOWN INDICATION
     Dosage: UNK
     Route: 065
  14. AVASTIN [Suspect]
     Active Substance: BEVACIZUMAB
     Dosage: 975 MG, 3XW
     Route: 042
     Dates: start: 20160520
  15. PACLITAXEL. [Suspect]
     Active Substance: PACLITAXEL
     Indication: OVARIAN CANCER
     Dosage: 60 MG/M2, QW
     Route: 042
     Dates: start: 20160225
  16. CARBOPLATIN. [Suspect]
     Active Substance: CARBOPLATIN
     Indication: OVARIAN CANCER
     Dosage: 1 DF, QW, 2 AUC
     Route: 042
     Dates: start: 20160225
  17. TRADONAL [Concomitant]
     Active Substance: TRAMADOL HYDROCHLORIDE
     Indication: PRODUCT USED FOR UNKNOWN INDICATION
     Dosage: UNK

REACTIONS (4)
  - Epilepsy [Recovered/Resolved]
  - Wound dehiscence [Not Recovered/Not Resolved]
  - Spinal compression fracture [Not Recovered/Not Resolved]
  - Dysgeusia [Not Recovered/Not Resolved]

NARRATIVE: CASE EVENT DATE: 20160325
